FAERS Safety Report 6414098-2 (Version None)
Quarter: 2009Q4

REPORT INFORMATION
  Report Type: 
  Country: None (occurrence: None)
  Receive Date: 20091022
  Receipt Date: 20091022
  Transmission Date: 20100525
  Serious: No
  Sender: FDA-Public Use
  Company Number: None

PATIENT
  Age: 83 Year
  Sex: Male
  Weight: 73.9363 kg

DRUGS (8)
  1. VITAMIN D [Suspect]
     Indication: VITAMIN D DEFICIENCY
     Dosage: CAPSULES OF 2000 UNITS 10/WK P.O. 12 MO ONCE DAILY THEN 3 MO 10/WK
     Route: 048
  2. COUMADIN [Concomitant]
  3. ATENOLOL [Concomitant]
  4. AMLODIPINE [Concomitant]
  5. ASPIRIN [Concomitant]
  6. CALCIUM [Concomitant]
  7. MULTIVIT [Concomitant]
  8. GLUCOSAMINE [Concomitant]

REACTIONS (1)
  - NO ADVERSE EVENT [None]
